FAERS Safety Report 17100954 (Version 4)
Quarter: 2021Q2

REPORT INFORMATION
  Report Type: Spontaneous
  Country: US (occurrence: US)
  Receive Date: 20191202
  Receipt Date: 20210518
  Transmission Date: 20210716
  Serious: No
  Sender: FDA-Public Use
  Company Number: US-SA-2019SA329722

PATIENT
  Age: 20 Year
  Sex: Male
  Weight: 63 kg

DRUGS (4)
  1. AQUAPHOR HEALING [Concomitant]
     Active Substance: PETROLATUM
  2. DUPIXENT [Suspect]
     Active Substance: DUPILUMAB
     Indication: ASTHMA
     Dosage: 300 MG, QOW
     Route: 058
     Dates: start: 20190601
  3. ALBUTEROL SULFATE HFA [Concomitant]
     Active Substance: ALBUTEROL SULFATE
  4. DUPIXENT [Suspect]
     Active Substance: DUPILUMAB
     Indication: DERMATITIS ATOPIC

REACTIONS (8)
  - Eye pruritus [Unknown]
  - Lip dry [Unknown]
  - Eye pain [Unknown]
  - Headache [Recovered/Resolved]
  - Lip erythema [Unknown]
  - Eye irritation [Unknown]
  - Eyelid exfoliation [Unknown]
  - Eye swelling [Unknown]

NARRATIVE: CASE EVENT DATE: 2019
